FAERS Safety Report 5414139-5 (Version None)
Quarter: 2007Q3

REPORT INFORMATION
  Report Type: 
  Country: None (occurrence: None)
  Receive Date: 20070814
  Receipt Date: 20070802
  Transmission Date: 20080115
  Serious: Yes (Hospitalization, Other)
  Sender: FDA-Public Use
  Company Number: PT-PFIZER INC-2007051701

PATIENT
  Sex: Female

DRUGS (3)
  1. XALATAN [Suspect]
     Indication: INTRAOCULAR PRESSURE INCREASED
     Route: 047
  2. COSOPT [Suspect]
     Indication: INTRAOCULAR PRESSURE INCREASED
  3. MULTIVITAMIN [Concomitant]

REACTIONS (4)
  - CORNEAL LESION [None]
  - EYE PAIN [None]
  - EYELID OPERATION [None]
  - IRIS HYPERPIGMENTATION [None]
